FAERS Safety Report 7285268-9 (Version None)
Quarter: 2011Q1

REPORT INFORMATION
  Report Type: 
  Country: None (occurrence: None)
  Receive Date: 20110210
  Receipt Date: 20110207
  Transmission Date: 20110831
  Serious: Yes (Other)
  Sender: FDA-Public Use
  Company Number: CA-PFIZER INC-2010018544

PATIENT
  Age: 38 Year
  Sex: Male
  Weight: 81.633 kg

DRUGS (2)
  1. CHAMPIX [Suspect]
     Indication: SMOKING CESSATION THERAPY
     Dosage: 1 MG, 2X/DAY
     Route: 048
     Dates: start: 20080102
  2. CHAMPIX [Suspect]
     Dosage: 0.5 MG, 2X/DAY
     Route: 048
     Dates: end: 20080401

REACTIONS (5)
  - DIZZINESS [None]
  - FATIGUE [None]
  - DEPRESSION [None]
  - ANHEDONIA [None]
  - HEADACHE [None]
